FAERS Safety Report 25036935 (Version 1)
Quarter: 2025Q1

REPORT INFORMATION
  Report Type: Report from Study
  Country: EG (occurrence: EG)
  Receive Date: 20250304
  Receipt Date: 20250304
  Transmission Date: 20250409
  Serious: Yes (Hospitalization, Other)
  Sender: ABBVIE
  Company Number: EG-ABBVIE-6155472

PATIENT
  Age: 31 Year
  Sex: Male

DRUGS (1)
  1. RINVOQ [Suspect]
     Active Substance: UPADACITINIB
     Indication: Crohn^s disease
     Dosage: FORM STRENGTH 15 MG, 3 TABLET
     Route: 048
     Dates: start: 20241104

REACTIONS (1)
  - Ileal stenosis [Recovering/Resolving]
